FAERS Safety Report 5400078-2 (Version None)
Quarter: 2007Q3

REPORT INFORMATION
  Report Type: 
  Country: None (occurrence: None)
  Receive Date: 20070725
  Receipt Date: 20070713
  Transmission Date: 20080115
  Serious: Yes (Other)
  Sender: FDA-Public Use
  Company Number: TCI2007A03487

PATIENT
  Age: 53 Year
  Sex: Male

DRUGS (4)
  1. ACTOS [Suspect]
     Indication: DIABETES MELLITUS
     Dosage: 15 MG (15 MG, 1 D)
     Route: 048
     Dates: start: 20070530, end: 20070713
  2. OLMESARTAN MEDOXOMIL [Concomitant]
  3. SEIBULE (MIGLITOL) [Concomitant]
  4. NORVASC [Concomitant]

REACTIONS (3)
  - CARDIAC HYPERTROPHY [None]
  - FACE OEDEMA [None]
  - OEDEMA PERIPHERAL [None]
